FAERS Safety Report 5574971-4 (Version None)
Quarter: 2007Q4

REPORT INFORMATION
  Report Type: 
  Country: None (occurrence: None)
  Receive Date: 20071227
  Receipt Date: 20071219
  Transmission Date: 20080405
  Serious: Yes (Other)
  Sender: FDA-Public Use
  Company Number: B0500337A

PATIENT
  Age: 58 Year
  Sex: Male

DRUGS (3)
  1. COMBIVIR [Suspect]
     Indication: HIV INFECTION
     Route: 065
  2. KALETRA [Concomitant]
  3. EFAVIRENZ [Concomitant]

REACTIONS (1)
  - ENCEPHALOPATHY [None]
